FAERS Safety Report 9580179 (Version 1)
Quarter: 2013Q4

REPORT INFORMATION
  Report Type: Spontaneous
  Country: PE (occurrence: PE)
  Receive Date: 20131002
  Receipt Date: 20131002
  Transmission Date: 20140711
  Serious: Yes (Life-Threatening, Other)
  Sender: FDA-Public Use
  Company Number: PE-SA-2013SA096416

PATIENT
  Age: 59 Year
  Sex: Female

DRUGS (3)
  1. LANTUS [Suspect]
     Indication: TYPE 2 DIABETES MELLITUS
     Dosage: DOSE:20 UNIT(S)
     Route: 058
     Dates: start: 20130918, end: 20130923
  2. LANTUS [Suspect]
     Indication: TYPE 2 DIABETES MELLITUS
     Dosage: 5 U MORNING AND 3 U AT NIGHT
     Route: 058
     Dates: start: 20130924
  3. ENALAPRIL [Concomitant]
     Indication: HYPERTENSION
     Route: 048
     Dates: start: 2012

REACTIONS (5)
  - Grand mal convulsion [Recovering/Resolving]
  - Depressed level of consciousness [Recovering/Resolving]
  - Masked facies [Recovering/Resolving]
  - Blood glucose increased [Recovering/Resolving]
  - Off label use [Unknown]
